FAERS Safety Report 11585130 (Version 4)
Quarter: 2015Q4

REPORT INFORMATION
  Report Type: Spontaneous
  Country: US (occurrence: US)
  Receive Date: 20151001
  Receipt Date: 20151207
  Transmission Date: 20160304
  Serious: No
  Sender: FDA-Public Use
  Company Number: US-GLAXOSMITHKLINE-US2015139174

PATIENT
  Age: 66 Year
  Sex: Male

DRUGS (3)
  1. SIMVASTATIN. [Concomitant]
     Active Substance: SIMVASTATIN
  2. ADVAIR DISKUS [Suspect]
     Active Substance: FLUTICASONE PROPIONATE\SALMETEROL XINAFOATE
     Indication: ASTHMA
     Dosage: 1 PUFF(S), QD
     Route: 055
  3. IRBESARTAN. [Concomitant]
     Active Substance: IRBESARTAN

REACTIONS (10)
  - Emotional distress [Unknown]
  - Asthma [Recovering/Resolving]
  - Psychomotor hyperactivity [Recovering/Resolving]
  - Palpitations [Recovering/Resolving]
  - Head discomfort [Recovering/Resolving]
  - Product quality issue [Unknown]
  - Inappropriate schedule of drug administration [Unknown]
  - Heart rate increased [Recovering/Resolving]
  - Chest discomfort [Recovering/Resolving]
  - Headache [Recovering/Resolving]

NARRATIVE: CASE EVENT DATE: 20150928
